FAERS Safety Report 21403142 (Version 1)
Quarter: 2022Q4

REPORT INFORMATION
  Report Type: Spontaneous
  Country: CN (occurrence: CN)
  Receive Date: 20221003
  Receipt Date: 20221003
  Transmission Date: 20230112
  Serious: Yes (Other)
  Sender: FDA-Public Use
  Company Number: CN-GLAXOSMITHKLINE-CN2022APC138062

PATIENT

DRUGS (3)
  1. FLUTICASONE PROPIONATE [Suspect]
     Active Substance: FLUTICASONE PROPIONATE
     Indication: Pneumonia
     Dosage: 4.0 ML, BID
     Route: 055
     Dates: start: 20220913, end: 20220914
  2. ACETYLCYSTEINE SOLUTION FOR INHALATION [Concomitant]
     Indication: Pneumonia
     Dosage: 3 ML, BID
     Route: 055
     Dates: start: 20220913, end: 20220914
  3. SALBUTAMOL SULPHATE NEBULES INHALATION SOLUTION [Concomitant]
     Indication: Pneumonia
     Dosage: 2 ML, BID
     Route: 055
     Dates: start: 20220913, end: 20220914

REACTIONS (10)
  - Electrocardiogram ST segment depression [Recovering/Resolving]
  - Electrocardiogram T wave inversion [Recovering/Resolving]
  - Electrocardiogram QT prolonged [Recovering/Resolving]
  - Electrocardiogram ST segment elevation [Recovering/Resolving]
  - Palpitations [Recovering/Resolving]
  - Sinus tachycardia [Recovering/Resolving]
  - Electrocardiogram P wave abnormal [Recovering/Resolving]
  - Sinus arrhythmia [Recovering/Resolving]
  - Electrocardiogram T wave abnormal [Recovering/Resolving]
  - Product use in unapproved indication [Unknown]

NARRATIVE: CASE EVENT DATE: 20220901
